FAERS Safety Report 24010630 (Version 1)
Quarter: 2024Q2

REPORT INFORMATION
  Report Type: Spontaneous
  Country: US (occurrence: US)
  Receive Date: 20240625
  Receipt Date: 20240625
  Transmission Date: 20240716
  Serious: No
  Sender: FDA-Public Use
  Company Number: US-AMRYT PHARMACEUTICALS DAC-AEGR007064

PATIENT
  Sex: Female
  Weight: 64.853 kg

DRUGS (1)
  1. FILSUVEZ [Suspect]
     Active Substance: BIRCH TRITERPENES
     Indication: Epidermolysis bullosa
     Dosage: 10 % W/W GEL (23.4 G) APPLY A 1 MM LAYER TO AFFECTED WOUND SURFACE (S) AT EACH DRESSING CHANGE UNTIL
     Route: 061
     Dates: start: 20240409

REACTIONS (2)
  - Skin infection [Not Recovered/Not Resolved]
  - Multiple use of single-use product [Recovered/Resolved]
